FAERS Safety Report 8583729 (Version 2)
Quarter: 2012Q4

REPORT INFORMATION
  Report Type: 
  Country: GB (occurrence: GB)
  Receive Date: 20120529
  Receipt Date: 20121205
  Transmission Date: 20130627
  Serious: Yes (Other)
  Sender: FDA-Public Use
  Company Number: GB-GLAXOSMITHKLINE-B0803826A

PATIENT
  Age: 31 Year
  Sex: Male

DRUGS (3)
  1. LAMICTAL [Suspect]
     Indication: EPILEPSY
     Dosage: 100MG Twice per day
     Route: 048
     Dates: start: 201204
  2. PSORALENS + ULTRAVIOLET A [Concomitant]
     Indication: PSORIASIS
  3. ZOPICLONE [Concomitant]
     Dosage: 7.5MG Per day

REACTIONS (4)
  - Epilepsy [Unknown]
  - Dehydration [Unknown]
  - Drug ineffective [Unknown]
  - Product quality issue [Unknown]
